FAERS Safety Report 18761684 (Version 2)
Quarter: 2021Q1

REPORT INFORMATION
  Report Type: Spontaneous
  Country: US (occurrence: US)
  Receive Date: 20210120
  Receipt Date: 20210226
  Transmission Date: 20210419
  Serious: No
  Sender: FDA-Public Use
  Company Number: US-BAYER-2021-029821

PATIENT
  Age: 40 Year
  Sex: Female

DRUGS (1)
  1. MIRENA [Suspect]
     Active Substance: LEVONORGESTREL
     Indication: CONTRACEPTION
     Dosage: 20 ?G PER DAY, CONTINUOUSLY
     Route: 015
     Dates: start: 20190313, end: 201911

REACTIONS (4)
  - Uterine leiomyoma [None]
  - Device expulsion [Recovered/Resolved]
  - Dysmenorrhoea [None]
  - Menorrhagia [None]

NARRATIVE: CASE EVENT DATE: 201911
